FAERS Safety Report 9155887 (Version 1)
Quarter: 2013Q1

REPORT INFORMATION
  Report Type: Spontaneous
  Country: MX (occurrence: MX)
  Receive Date: 20130311
  Receipt Date: 20130311
  Transmission Date: 20140127
  Serious: Yes (Other)
  Sender: FDA-Public Use
  Company Number: PHHY2013MX022621

PATIENT
  Age: 45 Year
  Sex: Female

DRUGS (3)
  1. TRILEPTAL [Suspect]
     Indication: EPILEPSY
     Dosage: 600 MG, UNK
     Route: 048
     Dates: start: 201208, end: 201211
  2. ADEPSIQUE [Concomitant]
     Indication: HEADACHE
     Dosage: UNK
     Dates: start: 201301
  3. ATARAX//HYDROXYZINE [Concomitant]
     Indication: EPILEPSY
     Dosage: UNK
     Dates: start: 201211

REACTIONS (2)
  - Cervix carcinoma [Recovered/Resolved]
  - Epilepsy [Recovered/Resolved]
